FAERS Safety Report 8183084-7 (Version None)
Quarter: 2012Q1

REPORT INFORMATION
  Report Type: 
  Country: None (occurrence: None)
  Receive Date: 20120126
  Receipt Date: 20111122
  Transmission Date: 20120608
  Serious: Yes (Other)
  Sender: FDA-Public Use
  Company Number: PHEH2011US010124

PATIENT
  Age: 7 Year
  Sex: Male

DRUGS (5)
  1. AFINITOR [Suspect]
     Indication: TUBEROUS SCLEROSIS
     Dosage: 5 MG, DAILY, ORAL, 7.5 MG
     Route: 048
     Dates: start: 20110712
  2. AFINITOR [Suspect]
     Indication: TUBEROUS SCLEROSIS
     Dosage: 5 MG, DAILY, ORAL, 7.5 MG
     Route: 048
     Dates: start: 20111111
  3. VIANSE [Concomitant]
  4. SINGULAIR [Concomitant]
  5. ZOLOFT [Concomitant]

REACTIONS (2)
  - BLOOD CHOLESTEROL INCREASED [None]
  - NEOPLASM PROGRESSION [None]
